FAERS Safety Report 11413362 (Version 2)
Quarter: 2015Q3

REPORT INFORMATION
  Report Type: Spontaneous
  Country: US (occurrence: US)
  Receive Date: 20150821
  Receipt Date: 20150903
  Transmission Date: 20151125
  Serious: No
  Sender: FDA-Public Use
  Company Number: US-ELI_LILLY_AND_COMPANY-US201210001944

PATIENT
  Sex: Female

DRUGS (4)
  1. VICODIN [Concomitant]
     Active Substance: ACETAMINOPHEN\HYDROCODONE BITARTRATE
  2. LANTUS [Concomitant]
     Active Substance: INSULIN GLARGINE
  3. HUMALOG [Suspect]
     Active Substance: INSULIN LISPRO
     Indication: DIABETES MELLITUS
  4. HUMULIN R [Suspect]
     Active Substance: INSULIN HUMAN
     Indication: DIABETES MELLITUS
     Dosage: 40 U, TID
     Dates: start: 201209

REACTIONS (13)
  - Tremor [Unknown]
  - Gait disturbance [Unknown]
  - Fluid retention [Unknown]
  - Muscle tightness [Unknown]
  - Mobility decreased [Unknown]
  - Dyspnoea [Unknown]
  - Rash [Unknown]
  - Hunger [Unknown]
  - Neuropathy peripheral [Unknown]
  - Weight increased [Unknown]
  - Drug hypersensitivity [Unknown]
  - Blood glucose decreased [Unknown]
  - Feeling abnormal [Unknown]

NARRATIVE: CASE EVENT DATE: 201209
